FAERS Safety Report 22084333 (Version 1)
Quarter: 2023Q1

REPORT INFORMATION
  Report Type: Spontaneous
  Country: US (occurrence: US)
  Receive Date: 20230310
  Receipt Date: 20230310
  Transmission Date: 20230417
  Serious: Yes (Hospitalization)
  Sender: FDA-Public Use
  Company Number: US-BRISTOL-MYERS SQUIBB COMPANY-2023-032153

PATIENT
  Age: 81 Year
  Sex: Female
  Weight: 79.83 kg

DRUGS (1)
  1. REVLIMID [Suspect]
     Active Substance: LENALIDOMIDE
     Indication: Plasma cell myeloma
     Dosage: DAILY FOR 21DAYS
     Route: 048

REACTIONS (6)
  - Hypotension [Unknown]
  - Dehydration [Unknown]
  - Asthenia [Unknown]
  - Lethargy [Unknown]
  - Taste disorder [Unknown]
  - Confusional state [Unknown]

NARRATIVE: CASE EVENT DATE: 20230217
